FAERS Safety Report 7062048-0 (Version None)
Quarter: 2010Q4

REPORT INFORMATION
  Report Type: 
  Country: None (occurrence: None)
  Receive Date: 20101026
  Receipt Date: 20101019
  Transmission Date: 20110411
  Serious: Yes (Death)
  Sender: FDA-Public Use
  Company Number: A0876888A

PATIENT
  Age: 72 Year
  Sex: Male

DRUGS (5)
  1. PROMACTA [Suspect]
     Indication: IDIOPATHIC THROMBOCYTOPENIC PURPURA
     Route: 048
     Dates: start: 20090909, end: 20100815
  2. CORTICOSTEROIDS [Concomitant]
     Indication: IDIOPATHIC THROMBOCYTOPENIC PURPURA
     Dates: start: 20090909
  3. METFORMIN [Concomitant]
  4. PERCOCET [Concomitant]
  5. ATIVAN [Concomitant]

REACTIONS (6)
  - DISEASE PROGRESSION [None]
  - LYMPHOMA [None]
  - PANCYTOPENIA [None]
  - PNEUMONIA [None]
  - PYREXIA [None]
  - WALDENSTROM'S MACROGLOBULINAEMIA [None]
